FAERS Safety Report 6370659-0 (Version None)
Quarter: 2009Q3

REPORT INFORMATION
  Report Type: 
  Country: None (occurrence: None)
  Receive Date: 20090923
  Receipt Date: 20070515
  Transmission Date: 20100115
  Serious: Yes (Other)
  Sender: FDA-Public Use
  Company Number: US-ASTRAZENECA-2006UW25097

PATIENT
  Age: 33 Year
  Sex: Female
  Weight: 77.1 kg

DRUGS (26)
  1. SEROQUEL [Suspect]
     Indication: DEPRESSION
     Dosage: 100MG TO 1200MG, AT NIGHT
     Route: 048
     Dates: start: 20021007
  2. SEROQUEL [Suspect]
     Indication: PSYCHOTIC DISORDER
     Dosage: 100MG TO 1200MG, AT NIGHT
     Route: 048
     Dates: start: 20021007
  3. SEROQUEL [Suspect]
     Route: 048
     Dates: start: 20030101, end: 20050101
  4. SEROQUEL [Suspect]
     Route: 048
     Dates: start: 20030101, end: 20050101
  5. ABILIFY [Concomitant]
     Indication: PSYCHOTIC DISORDER
     Route: 048
     Dates: start: 20041018
  6. GEODON [Concomitant]
     Route: 048
     Dates: start: 20020611
  7. RISPERDAL [Concomitant]
  8. ZYPREXA/SYMBYAX [Concomitant]
  9. KLONOPIN [Concomitant]
     Indication: ANXIETY
     Route: 048
     Dates: start: 20031113
  10. EFFEXOR XR [Concomitant]
     Indication: DEPRESSION
     Route: 048
     Dates: start: 20031113
  11. WELLBUTRIN [Concomitant]
     Indication: DEPRESSION
     Route: 048
     Dates: start: 20050111
  12. RESTORIL [Concomitant]
     Route: 048
     Dates: start: 20050623
  13. LUNESTA [Concomitant]
     Route: 048
     Dates: start: 20050623
  14. FLEXERIL [Concomitant]
     Route: 048
     Dates: start: 20060719
  15. REMERON [Concomitant]
     Route: 048
     Dates: start: 20001113
  16. ZOLOFT [Concomitant]
     Route: 048
     Dates: start: 20060926
  17. ELAVIL [Concomitant]
     Dosage: 50 MG, FOUR TABLETS AT NIGHT
     Route: 048
     Dates: start: 20061007
  18. TOPAMAX [Concomitant]
     Dosage: 25 MG, 1 TAB AT NIGHT- 1ST WEEK, 2 TABS AT NIGHT-2ND WEEK, 3 TABS AT NIGHT- 3RD WEEK
     Route: 048
     Dates: start: 20061207
  19. HUMULIN 70/30 [Concomitant]
     Dosage: 15 UNITS IN MORNING, 10 UNITS AT NIGHT
     Dates: start: 20050603
  20. ZOCOR [Concomitant]
     Route: 048
     Dates: start: 20060929
  21. COZAAR [Concomitant]
     Route: 048
     Dates: start: 20060518
  22. LIPITOR [Concomitant]
     Route: 048
     Dates: start: 20050603
  23. METFORMIN HCL [Concomitant]
     Indication: DIABETES MELLITUS
     Route: 048
     Dates: start: 20050516
  24. AVANDIA [Concomitant]
     Route: 048
     Dates: start: 20051229
  25. TRAZODONE [Concomitant]
     Route: 048
     Dates: start: 20040723
  26. CLARITIN [Concomitant]
     Indication: RHINITIS ALLERGIC
     Route: 048
     Dates: start: 20050822

REACTIONS (5)
  - BLOOD CHOLESTEROL INCREASED [None]
  - DIABETES MELLITUS [None]
  - HYPERGLYCAEMIA [None]
  - TYPE 1 DIABETES MELLITUS [None]
  - WEIGHT INCREASED [None]
